FAERS Safety Report 12706857 (Version 2)
Quarter: 2016Q3

REPORT INFORMATION
  Report Type: Report from Study
  Country: NL (occurrence: NL)
  Receive Date: 20160901
  Receipt Date: 20160908
  Transmission Date: 20161109
  Serious: Yes (Hospitalization, Other)
  Sender: FDA-Public Use
  Company Number: NL-AMGEN-NLDSL2016112407

PATIENT
  Age: 52 Year
  Sex: Male

DRUGS (1)
  1. XGEVA [Suspect]
     Active Substance: DENOSUMAB
     Indication: PROPHYLAXIS
     Dosage: 120 MG/1.70 ML, Q4WK
     Route: 058

REACTIONS (4)
  - Nosocomial infection [Unknown]
  - Infection [Unknown]
  - Bacterial infection [Unknown]
  - Prostatic operation [Unknown]

NARRATIVE: CASE EVENT DATE: 20160823
